FAERS Safety Report 13923439 (Version 3)
Quarter: 2017Q3

REPORT INFORMATION
  Report Type: Spontaneous
  Country: IT (occurrence: IT)
  Receive Date: 20170831
  Receipt Date: 20170907
  Transmission Date: 20171127
  Serious: Yes (Other)
  Sender: FDA-Public Use
  Company Number: IT-SUN PHARMACEUTICAL INDUSTRIES LTD-2017RR-148781

PATIENT
  Age: 34 Year
  Sex: Female

DRUGS (5)
  1. TRIPTORELIN [Concomitant]
     Active Substance: TRIPTORELIN
     Indication: PROPHYLAXIS
     Dosage: 0.1 MG, UNK
     Route: 065
  2. RECOMBINANT HUMAN FOLLICLE STIMULATING HORMONE [Concomitant]
     Indication: INVASIVE DUCTAL BREAST CARCINOMA
     Dosage: 150 IU
     Route: 065
  3. LETROZOLE. [Suspect]
     Active Substance: LETROZOLE
     Indication: BREAST CANCER
     Dosage: 5 MG, DAILY
     Route: 065
  4. LETROZOLE. [Suspect]
     Active Substance: LETROZOLE
     Dosage: 2.5 MG, DAILY
     Route: 065
  5. TRIPTORELIN [Concomitant]
     Active Substance: TRIPTORELIN
     Route: 040

REACTIONS (1)
  - Progesterone increased [Unknown]
